FAERS Safety Report 8098403-X (Version None)
Quarter: 2012Q1

REPORT INFORMATION
  Report Type: 
  Country: None (occurrence: None)
  Receive Date: 20120131
  Receipt Date: 20120123
  Transmission Date: 20120608
  Serious: Yes (Life-Threatening, Hospitalization, Disabling, Other)
  Sender: FDA-Public Use
  Company Number: US-MERCK-0908USA01148

PATIENT
  Age: 69 Year
  Sex: Female
  Weight: 64 kg

DRUGS (8)
  1. FOSAMAX [Suspect]
     Indication: OSTEOPOROSIS
     Route: 048
     Dates: start: 19980101, end: 20080701
  2. HORMONES (UNSPECIFIED) [Concomitant]
     Route: 065
     Dates: start: 19850101, end: 20080101
  3. CALCIUM (UNSPECIFIED) [Concomitant]
     Indication: OSTEOPOROSIS
     Route: 065
  4. FOSAMAX [Suspect]
     Route: 048
     Dates: start: 20080701
  5. CALCIUM (UNSPECIFIED) AND VITAMIN D (UNSPECIFIED) [Concomitant]
     Route: 065
     Dates: start: 19900101
  6. OMEGA-3 MARINE TRIGLYCERIDES [Concomitant]
     Route: 065
     Dates: start: 19900101
  7. FOSAMAX [Suspect]
     Route: 048
     Dates: start: 20000413, end: 20001001
  8. VITAMINS (UNSPECIFIED) [Concomitant]
     Route: 065
     Dates: start: 19900101

REACTIONS (21)
  - GASTRITIS [None]
  - UTERINE LEIOMYOMA [None]
  - MITRAL VALVE PROLAPSE [None]
  - FOOT FRACTURE [None]
  - BLOOD CHOLESTEROL INCREASED [None]
  - CERVICAL SPINAL STENOSIS [None]
  - HYPOTHYROIDISM [None]
  - POSTMENOPAUSAL HAEMORRHAGE [None]
  - OBESITY [None]
  - RIB FRACTURE [None]
  - OSTEOARTHRITIS [None]
  - ULCER [None]
  - LOW TURNOVER OSTEOPATHY [None]
  - FEMUR FRACTURE [None]
  - BODY HEIGHT DECREASED [None]
  - CARDIAC MURMUR [None]
  - SPINAL DISORDER [None]
  - BREAST DISORDER [None]
  - UTERINE POLYP [None]
  - LUNG NEOPLASM [None]
  - CHEST PAIN [None]
